FAERS Safety Report 7994522-4 (Version None)
Quarter: 2011Q4

REPORT INFORMATION
  Report Type: 
  Country: None (occurrence: None)
  Receive Date: 20111220
  Receipt Date: 20110310
  Transmission Date: 20120403
  Serious: No
  Sender: FDA-Public Use
  Company Number: US-PFIZER INC-K201100256

PATIENT
  Sex: Female

DRUGS (1)
  1. SILVADENE [Suspect]
     Indication: THERMAL BURN
     Dosage: UNK
     Route: 061
     Dates: start: 20110101, end: 20110101

REACTIONS (1)
  - MATERNAL EXPOSURE DURING PREGNANCY [None]
